FAERS Safety Report 18494802 (Version 2)
Quarter: 2021Q1

REPORT INFORMATION
  Report Type: Spontaneous
  Country: US (occurrence: US)
  Receive Date: 20201112
  Receipt Date: 20210311
  Transmission Date: 20210419
  Serious: Yes (Other)
  Sender: FDA-Public Use
  Company Number: US-JNJFOC-20201118240

PATIENT
  Sex: Male

DRUGS (1)
  1. DURAGESIC [Suspect]
     Active Substance: FENTANYL
     Indication: PRODUCT USED FOR UNKNOWN INDICATION
     Route: 065

REACTIONS (6)
  - Joint dislocation [Unknown]
  - Muscle spasms [Unknown]
  - Skin disorder [Unknown]
  - Autism spectrum disorder [Unknown]
  - Arthropathy [Unknown]
  - Joint hyperextension [Unknown]

NARRATIVE: CASE EVENT DATE: 20201109
